FAERS Safety Report 21179579 (Version 3)
Quarter: 2022Q3

REPORT INFORMATION
  Report Type: Spontaneous
  Country: US (occurrence: US)
  Receive Date: 20220805
  Receipt Date: 20220908
  Transmission Date: 20221027
  Serious: Yes (Other)
  Sender: FDA-Public Use
  Company Number: US-ORGANON-O2208USA000400

PATIENT
  Age: 21 Year
  Sex: Female
  Weight: 95.692 kg

DRUGS (5)
  1. NEXPLANON [Suspect]
     Active Substance: ETONOGESTREL
     Dosage: 1 IMPLANT, 68 MG EVERY 3 YEARS IN LEFT ARM
     Route: 059
     Dates: start: 20201105, end: 20220729
  2. FLUOXETINE HYDROCHLORIDE [Concomitant]
     Active Substance: FLUOXETINE HYDROCHLORIDE
     Dosage: 2 CAPSULES BY MOUTH ONCE DAILY
     Route: 048
  3. ARIPIPRAZOLE [Concomitant]
     Active Substance: ARIPIPRAZOLE
     Dosage: 1 TABLET BY MOUTH ONCE DAILY
     Route: 048
  4. VITAMINS NOS [Concomitant]
     Active Substance: VITAMINS
     Dosage: EVERY DAY
  5. PAROXETINE HYDROCHLORIDE [Concomitant]
     Active Substance: PAROXETINE HYDROCHLORIDE
     Dosage: 20 MILLIGRAM, QD, ONE PILL BY MOUTH DAILY
     Route: 048
     Dates: end: 20220629

REACTIONS (3)
  - Cellulitis [Unknown]
  - Device expulsion [Recovered/Resolved]
  - Implant site infection [Recovered/Resolved]

NARRATIVE: CASE EVENT DATE: 20220601
